FAERS Safety Report 9533176 (Version 1)
Quarter: 2013Q1

REPORT INFORMATION
  Report Type: Spontaneous
  Country: US (occurrence: None)
  Receive Date: 20130320
  Receipt Date: 20130320
  Transmission Date: 20140127
  Serious: Yes (Other)
  Sender: FDA-Public Use
  Company Number: 2013-000059

PATIENT
  Sex: Female
  Weight: 52.2 kg

DRUGS (5)
  1. ESTRACE CREAM, 0.01% [Suspect]
     Indication: ATROPHIC VULVOVAGINITIS
     Route: 067
     Dates: start: 20120824, end: 20130108
  2. ATENOLOL [Concomitant]
  3. DIGOXIN [Concomitant]
  4. SYNTHROID (LEVOTHYROXINE SODIUM) [Concomitant]
  5. XARELTO (RIVAROXABAN) [Concomitant]

REACTIONS (1)
  - Breast cancer [None]
